FAERS Safety Report 7481003-X (Version None)
Quarter: 2011Q2

REPORT INFORMATION
  Report Type: 
  Country: None (occurrence: None)
  Receive Date: 20110516
  Receipt Date: 20110510
  Transmission Date: 20111010
  Serious: Yes (Hospitalization)
  Sender: FDA-Public Use
  Company Number: CA-US-EMD SERONO, INC.-7014206

PATIENT
  Sex: Female

DRUGS (8)
  1. REBIF [Suspect]
     Indication: MULTIPLE SCLEROSIS
     Dates: start: 20100712
  2. REBIF [Suspect]
     Dates: start: 20100101
  3. PANTOLOC [Concomitant]
  4. BACLOFEN [Concomitant]
  5. ARTHROTEC [Concomitant]
  6. MIRAPEX [Concomitant]
  7. VITAMIN D [Concomitant]
  8. FERROUS SULFATE TAB [Concomitant]

REACTIONS (7)
  - SMALL INTESTINAL OBSTRUCTION [None]
  - INJECTION SITE PAIN [None]
  - CHILLS [None]
  - NAUSEA [None]
  - INAPPROPRIATE SCHEDULE OF DRUG ADMINISTRATION [None]
  - INJECTION SITE ERYTHEMA [None]
  - HEADACHE [None]
